FAERS Safety Report 13828830 (Version 1)
Quarter: 2017Q3

REPORT INFORMATION
  Report Type: Spontaneous
  Country: GB (occurrence: GB)
  Receive Date: 20170803
  Receipt Date: 20170803
  Transmission Date: 20171127
  Serious: Yes (Death, Other)
  Sender: FDA-Public Use
  Company Number: GB-009507513-1708GBR001411

PATIENT
  Age: 39 Year
  Sex: Female
  Weight: 48.98 kg

DRUGS (3)
  1. MIRTAZAPINE. [Suspect]
     Active Substance: MIRTAZAPINE
     Indication: DEPRESSION
     Dosage: 15 MG, UNK
     Route: 048
     Dates: start: 20170531, end: 2017
  2. ZOPICLONE [Suspect]
     Active Substance: ZOPICLONE
     Indication: INSOMNIA
     Dosage: 7.5 MG, UNK
     Route: 048
     Dates: start: 20170607
  3. MIRTAZAPINE. [Suspect]
     Active Substance: MIRTAZAPINE
     Dosage: 30 MG, UNK
     Route: 048
     Dates: start: 2017, end: 2017

REACTIONS (10)
  - Disorientation [Unknown]
  - Vomiting [Unknown]
  - Tinnitus [Unknown]
  - Depression [Unknown]
  - Hypersensitivity [Unknown]
  - Completed suicide [Fatal]
  - Hallucinations, mixed [Unknown]
  - Suicidal ideation [Not Recovered/Not Resolved]
  - Drug prescribing error [Unknown]
  - Tremor [Unknown]

NARRATIVE: CASE EVENT DATE: 2017
